FAERS Safety Report 6344779-0 (Version None)
Quarter: 2009Q3

REPORT INFORMATION
  Report Type: 
  Country: None (occurrence: None)
  Receive Date: 20090904
  Receipt Date: 20090824
  Transmission Date: 20100115
  Serious: Yes (Hospitalization)
  Sender: FDA-Public Use
  Company Number: 2009SP021876

PATIENT
  Age: 71 Year
  Sex: Male

DRUGS (16)
  1. DEXAMETHASONE [Suspect]
     Indication: PREMEDICATION
     Dosage: 20 MG;IV ; 8 MG;TID
     Route: 042
     Dates: start: 20090723, end: 20090723
  2. PREDNISONE [Suspect]
     Indication: PROSTATE CANCER
     Dosage: 5 MG;BID;PO
     Route: 048
     Dates: start: 20090203
  3. DASATINIB [Suspect]
     Indication: PROSTATE CANCER
     Dosage: 70 MG;QD;PO
     Route: 048
     Dates: start: 20090203
  4. PLACEBO [Suspect]
     Indication: PROSTATE CANCER
     Dosage: QD;PO
     Route: 048
     Dates: start: 20090203
  5. DOCETAXEL [Suspect]
     Indication: PROSTATE CANCER
     Dosage: 110 MG;IV
     Route: 042
     Dates: start: 20090203, end: 20090723
  6. ALEVE [Concomitant]
  7. EFFEXOR XR [Concomitant]
  8. COMBIVENT [Concomitant]
  9. ASPIRIN [Concomitant]
  10. PLAVIX [Concomitant]
  11. LISINOPRIL /00894002/ [Concomitant]
  12. SIMVASTATIN [Concomitant]
  13. AMLODIPINE /00972402/ [Concomitant]
  14. MULTIVITAMIN /00097801/ [Concomitant]
  15. LYRICA [Concomitant]
  16. FLOMAX [Concomitant]

REACTIONS (1)
  - CELLULITIS [None]
